FAERS Safety Report 4951209-X (Version None)
Quarter: 2006Q1

REPORT INFORMATION
  Report Type: 
  Country: None (occurrence: None)
  Receive Date: 20060314
  Receipt Date: 20060306
  Transmission Date: 20060701
  Serious: Yes (Hospitalization, Disabling)
  Sender: FDA-Public Use
  Company Number: 200610062BWH

PATIENT
  Age: 45 Year
  Sex: Female

DRUGS (9)
  1. ADALAT CC [Suspect]
     Indication: MYOCARDIAL INFARCTION
     Dosage: SEE IMAGE
     Dates: start: 20051001, end: 20050101
  2. ADALAT CC [Suspect]
     Indication: MYOCARDIAL INFARCTION
     Dosage: SEE IMAGE
     Dates: start: 19980101, end: 20050801
  3. ADALAT CC [Suspect]
     Indication: MYOCARDIAL INFARCTION
     Dosage: SEE IMAGE
     Dates: start: 19980101
  4. LISINOPRIL [Concomitant]
  5. LIPITOR [Concomitant]
  6. NEXIUM [Concomitant]
  7. ASPIRIN [Concomitant]
  8. XANAX [Concomitant]
  9. PRILOSEC [Concomitant]

REACTIONS (9)
  - ABDOMINAL PAIN UPPER [None]
  - ANXIETY [None]
  - DEPRESSION [None]
  - DIZZINESS [None]
  - DYSPEPSIA [None]
  - FEELING ABNORMAL [None]
  - GALLBLADDER ENLARGEMENT [None]
  - HEART RATE INCREASED [None]
  - HIATUS HERNIA [None]
